FAERS Safety Report 5730242-4 (Version None)
Quarter: 2008Q2

REPORT INFORMATION
  Report Type: 
  Country: None (occurrence: None)
  Receive Date: 20080502
  Receipt Date: 20080421
  Transmission Date: 20081010
  Serious: Yes (Hospitalization)
  Sender: FDA-Public Use
  Company Number: 6042399

PATIENT
  Age: 84 Year
  Sex: Male

DRUGS (2)
  1. EMCONCOR          (FILM-COATED TABLET) (BISOPROLOL FUMARATE) [Suspect]
     Indication: ESSENTIAL HYPERTENSION
     Dates: start: 20071001
  2. ALFADIL       (PROLONGED-RELEASE TABLET) (DOXAZOSIN MESILATE) [Suspect]
     Indication: ESSENTIAL HYPERTENSION
     Dates: start: 20071001

REACTIONS (5)
  - BLOOD PRESSURE DECREASED [None]
  - CHEST PAIN [None]
  - ELECTROCARDIOGRAM QT PROLONGED [None]
  - HEART RATE DECREASED [None]
  - LOSS OF CONSCIOUSNESS [None]
